FAERS Safety Report 8599680-9 (Version None)
Quarter: 2012Q3

REPORT INFORMATION
  Report Type: 
  Country: None (occurrence: None)
  Receive Date: 20120816
  Receipt Date: 20120808
  Transmission Date: 20120928
  Serious: Yes (Other)
  Sender: FDA-Public Use
  Company Number: CA-BRISTOL-MYERS SQUIBB COMPANY-16510539

PATIENT
  Age: 33 Year
  Sex: Female

DRUGS (2)
  1. ORENCIA [Suspect]
     Indication: RHEUMATOID ARTHRITIS
     Dosage: LAST INFUSION ON 12MAR2012,17JUL12 NO OF INF: 38
     Route: 042
     Dates: start: 20080728
  2. METHOTREXATE [Suspect]

REACTIONS (3)
  - GALLBLADDER DISORDER [None]
  - SINUSITIS [None]
  - CROUP INFECTIOUS [None]
